FAERS Safety Report 13027169 (Version 1)
Quarter: 2016Q4

REPORT INFORMATION
  Report Type: Spontaneous
  Country: US (occurrence: US)
  Receive Date: 20161214
  Receipt Date: 20161214
  Transmission Date: 20170207
  Serious: Yes (Hospitalization, Other)
  Sender: FDA-Public Use
  Company Number: None

PATIENT
  Age: 67 Year
  Sex: Female
  Weight: 52.66 kg

DRUGS (1)
  1. XOLAIR [Suspect]
     Active Substance: OMALIZUMAB
     Indication: IDIOPATHIC URTICARIA
     Dosage: 150MG Q4WEEKS SC
     Route: 058
     Dates: start: 20160610

REACTIONS (3)
  - Urinary tract infection [None]
  - Diverticulitis [None]
  - Meningitis [None]

NARRATIVE: CASE EVENT DATE: 201612
